FAERS Safety Report 7484899-0 (Version None)
Quarter: 2011Q2

REPORT INFORMATION
  Report Type: 
  Country: None (occurrence: None)
  Receive Date: 20110517
  Receipt Date: 20110511
  Transmission Date: 20111010
  Serious: Yes (Other)
  Sender: FDA-Public Use
  Company Number: A0927211A

PATIENT
  Age: 46 Year
  Sex: Female

DRUGS (9)
  1. RITUXIMAB [Concomitant]
     Indication: IDIOPATHIC THROMBOCYTOPENIC PURPURA
  2. LISINOPRIL [Concomitant]
     Dosage: 10MG PER DAY
  3. EXCEDRIN (MIGRAINE) [Concomitant]
     Route: 048
  4. CYANOCOBALAMIN [Concomitant]
     Dosage: 1000MCG MONTHLY
  5. PERCOCET [Concomitant]
     Route: 048
  6. PROMACTA [Suspect]
     Indication: IDIOPATHIC THROMBOCYTOPENIC PURPURA
     Dosage: 75MG PER DAY
     Dates: end: 20101101
  7. LASIX [Concomitant]
     Dosage: 20MG PER DAY
  8. AMLODIPINE BESYLATE [Concomitant]
     Dosage: 5MG PER DAY
  9. HYDROCHLOROTHIAZIDE [Concomitant]
     Dosage: 25MG PER DAY

REACTIONS (5)
  - MUSCULAR WEAKNESS [None]
  - PAIN IN EXTREMITY [None]
  - DEEP VEIN THROMBOSIS [None]
  - LIMB DISCOMFORT [None]
  - INDURATION [None]
